FAERS Safety Report 12158160 (Version 2)
Quarter: 2019Q3

REPORT INFORMATION
  Report Type: Spontaneous
  Country: US (occurrence: US)
  Receive Date: 20160308
  Receipt Date: 20190923
  Transmission Date: 20191004
  Serious: Yes (Hospitalization)
  Sender: FDA-Public Use
  Company Number: US-JNJFOC-20150210157

PATIENT
  Age: 74 Year
  Sex: Female

DRUGS (21)
  1. LOPERAMIDE HYDROCHLORIDE. [Concomitant]
     Active Substance: LOPERAMIDE HYDROCHLORIDE
  2. TRAZODONE [Concomitant]
     Active Substance: TRAZODONE HYDROCHLORIDE
  3. MULTIVITAMINS [Concomitant]
     Active Substance: VITAMINS
  4. IMBRUVICA [Suspect]
     Active Substance: IBRUTINIB
     Dosage: 2 PILLS
     Route: 048
     Dates: start: 20150121
  5. ATIVAN [Concomitant]
     Active Substance: LORAZEPAM
  6. AVAPRO [Concomitant]
     Active Substance: IRBESARTAN
  7. CALCIUM WITH VITAMIN D [Concomitant]
     Active Substance: CALCIUM\VITAMIN D
  8. HYDROCHLOROTHIAZIDE. [Concomitant]
     Active Substance: HYDROCHLOROTHIAZIDE
  9. VOLTAREN [Concomitant]
     Active Substance: DICLOFENAC SODIUM
  10. IMBRUVICA [Suspect]
     Active Substance: IBRUTINIB
     Indication: CHRONIC LYMPHOCYTIC LEUKAEMIA
     Route: 048
     Dates: start: 20140606
  11. LOPRESSOR [Concomitant]
     Active Substance: METOPROLOL TARTRATE
  12. ZOCOR [Concomitant]
     Active Substance: SIMVASTATIN
  13. IMBRUVICA [Suspect]
     Active Substance: IBRUTINIB
     Route: 048
     Dates: start: 20150129
  14. CLARITIN [Concomitant]
     Active Substance: LORATADINE
  15. PRILOSEC [Concomitant]
     Active Substance: OMEPRAZOLE MAGNESIUM
  16. COUMADIN [Concomitant]
     Active Substance: WARFARIN SODIUM
  17. OXYCODONE [Concomitant]
     Active Substance: OXYCODONE
  18. WELLBUTRIN [Concomitant]
     Active Substance: BUPROPION HYDROCHLORIDE
  19. ACYCLOVIR. [Concomitant]
     Active Substance: ACYCLOVIR
  20. SYNTHROID [Concomitant]
     Active Substance: LEVOTHYROXINE SODIUM
  21. ZOLOFT [Concomitant]
     Active Substance: SERTRALINE HYDROCHLORIDE

REACTIONS (3)
  - Atrial fibrillation [Recovered/Resolved]
  - Influenza [Recovered/Resolved]
  - Pneumonia [Recovered/Resolved]

NARRATIVE: CASE EVENT DATE: 201501
